FAERS Safety Report 19777609 (Version 1)
Quarter: 2021Q3

REPORT INFORMATION
  Report Type: Spontaneous
  Country: US (occurrence: US)
  Receive Date: 20210902
  Receipt Date: 20210902
  Transmission Date: 20211014
  Serious: Yes (Hospitalization)
  Sender: FDA-Public Use
  Company Number: US-BAUSCH-BL-2021-029663

PATIENT
  Age: 37 Year
  Sex: Male

DRUGS (4)
  1. TRULANCE [Suspect]
     Active Substance: PLECANATIDE
     Indication: FAECALOMA
     Route: 065
  2. LACTULOSE. [Suspect]
     Active Substance: LACTULOSE
     Indication: FAECALOMA
     Route: 065
  3. LINZESS [Suspect]
     Active Substance: LINACLOTIDE
     Indication: FAECALOMA
     Route: 065
  4. AMITIZA [Suspect]
     Active Substance: LUBIPROSTONE
     Indication: FAECALOMA
     Route: 065

REACTIONS (2)
  - Drug ineffective [Unknown]
  - Hospitalisation [Unknown]

NARRATIVE: CASE EVENT DATE: 202107
